FAERS Safety Report 5127099-1 (Version None)
Quarter: 2006Q4

REPORT INFORMATION
  Report Type: 
  Country: None (occurrence: None)
  Receive Date: 20061013
  Receipt Date: 20060710
  Transmission Date: 20070319
  Serious: Yes (Other)
  Sender: FDA-Public Use
  Company Number: US-BRISTOL-MYERS SQUIBB COMPANY-13437496

PATIENT
  Age: 91 Year
  Sex: Male

DRUGS (3)
  1. KENALOG-40 [Suspect]
     Indication: MACULAR DEGENERATION
     Dosage: THE INJECTION WAS INTRAVITREAL.
     Route: 047
     Dates: start: 20060524, end: 20060524
  2. SYNTHROID [Concomitant]
     Indication: HYPOTHYROIDISM
  3. MULTI-VITAMIN [Concomitant]

REACTIONS (3)
  - ENDOPHTHALMITIS [None]
  - INTRAOCULAR PRESSURE INCREASED [None]
  - VITREOUS OPACITIES [None]
